FAERS Safety Report 20704005 (Version 8)
Quarter: 2022Q3

REPORT INFORMATION
  Report Type: Report from Study
  Country: CA (occurrence: CA)
  Receive Date: 20220413
  Receipt Date: 20220821
  Transmission Date: 20221027
  Serious: Yes (Hospitalization, Other)
  Sender: FDA-Public Use
  Company Number: CA-JNJFOC-20220417431

PATIENT
  Age: 76 Year
  Sex: Female

DRUGS (2)
  1. SIMPONI [Suspect]
     Active Substance: GOLIMUMAB
     Indication: Rheumatoid arthritis
     Route: 058
     Dates: start: 20211014
  2. SIMPONI [Suspect]
     Active Substance: GOLIMUMAB
     Dosage: EXPIRY DATE- 30-SEP-2024
     Route: 058
     Dates: start: 20211013, end: 20220514

REACTIONS (5)
  - Hydronephrosis [Unknown]
  - Blood pressure abnormal [Unknown]
  - Asymptomatic COVID-19 [Recovering/Resolving]
  - Rheumatoid arthritis [Unknown]
  - Drug ineffective [Unknown]

NARRATIVE: CASE EVENT DATE: 20220407
